FAERS Safety Report 5757308-7 (Version None)
Quarter: 2008Q2

REPORT INFORMATION
  Report Type: 
  Country: None (occurrence: None)
  Receive Date: 20080603
  Receipt Date: 20080522
  Transmission Date: 20081010
  Serious: Yes (Other)
  Sender: FDA-Public Use
  Company Number: MX-ROCHE-567617

PATIENT
  Sex: Male
  Weight: 65 kg

DRUGS (4)
  1. INVIRASE [Suspect]
     Dosage: FOUR DOSE FORMS DAILY
     Route: 048
     Dates: start: 20071204, end: 20071207
  2. RITONAVIR [Suspect]
     Dosage: TWO DOSE FORMS DAILY
     Route: 048
     Dates: start: 20071204, end: 20071207
  3. TRUVADA [Suspect]
     Dosage: STRENGTH: TENOFOVIR/EMTRICITABINE, 300/200 MG. ONE DOSE FORM DAILY.
     Route: 048
     Dates: start: 20071204, end: 20071207
  4. TRUVADA [Suspect]
     Dosage: STRENGTH: TENOFOVIR/EMTRICITABINE, 300/200 MG. ONE DOSE FORM DAILY.
     Route: 048
     Dates: start: 20071204, end: 20071207

REACTIONS (2)
  - ERYTHEMA [None]
  - TESTICULAR PAIN [None]
